FAERS Safety Report 15692558 (Version 1)
Quarter: 2018Q4

REPORT INFORMATION
  Report Type: Spontaneous
  Country: US (occurrence: US)
  Receive Date: 20181206
  Receipt Date: 20181206
  Transmission Date: 20190205
  Serious: Yes (Life-Threatening)
  Sender: FDA-Public Use
  Company Number: US-PURDUE-USA-2018-0144672

PATIENT
  Age: 59 Year
  Sex: Female

DRUGS (1)
  1. HYSINGLA ER [Suspect]
     Active Substance: HYDROCODONE BITARTRATE
     Indication: PRODUCT USED FOR UNKNOWN INDICATION
     Dosage: 40 MG, BID
     Route: 048
     Dates: start: 201610, end: 201702

REACTIONS (15)
  - Nausea [Recovered/Resolved]
  - Vomiting [Recovered/Resolved]
  - Malaise [Recovered/Resolved]
  - Dysphagia [Unknown]
  - Feeling abnormal [Recovered/Resolved]
  - Respiratory failure [Recovered/Resolved]
  - Nasopharyngitis [Recovered/Resolved]
  - Abdominal pain upper [Unknown]
  - Dysgraphia [Unknown]
  - Nervousness [Recovered/Resolved]
  - Off label use [Recovered/Resolved]
  - Gastrointestinal disorder [Recovered/Resolved]
  - Influenza [Recovered/Resolved]
  - Gait disturbance [Unknown]
  - Dyspnoea [Recovered/Resolved]

NARRATIVE: CASE EVENT DATE: 201610
